FAERS Safety Report 7227208-4 (Version None)
Quarter: 2011Q1

REPORT INFORMATION
  Report Type: 
  Country: None (occurrence: None)
  Receive Date: 20110114
  Receipt Date: 20110103
  Transmission Date: 20110831
  Serious: Yes (Congenital Anomaly)
  Sender: FDA-Public Use
  Company Number: A0680497A

PATIENT
  Sex: Female

DRUGS (6)
  1. MACROBID [Concomitant]
  2. PAXIL [Suspect]
     Indication: ANXIETY
     Dosage: 10MG TWICE PER DAY
     Dates: start: 20010720
  3. XENICAL [Concomitant]
  4. VALTREX [Concomitant]
  5. ALDOMET [Concomitant]
  6. PRENATAL VITAMINS [Concomitant]

REACTIONS (6)
  - MITRAL VALVE DISEASE [None]
  - CARDIAC ANEURYSM [None]
  - CONGENITAL ANOMALY [None]
  - DRUG EXPOSURE DURING PREGNANCY [None]
  - ATRIAL SEPTAL DEFECT [None]
  - PATENT DUCTUS ARTERIOSUS [None]
